FAERS Safety Report 8477192-0 (Version None)
Quarter: 2012Q2

REPORT INFORMATION
  Report Type: 
  Country: None (occurrence: None)
  Receive Date: 20120625
  Receipt Date: 20120625
  Transmission Date: 20120825
  Serious: No
  Sender: FDA-Public Use
  Company Number: None

PATIENT
  Age: 69 Year
  Sex: Female
  Weight: 78.0187 kg

DRUGS (1)
  1. DIOVAN HCT [Suspect]
     Indication: HYPERTENSION
     Dosage: 1 TABLET DAILY OROPHARINGEAL
     Route: 049
     Dates: start: 20100514, end: 20120622

REACTIONS (1)
  - ONYCHOCLASIS [None]
